FAERS Safety Report 23371828 (Version 2)
Quarter: 2024Q1

REPORT INFORMATION
  Report Type: Spontaneous
  Country: JP (occurrence: JP)
  Receive Date: 20240105
  Receipt Date: 20240123
  Transmission Date: 20240410
  Serious: No
  Sender: FDA-Public Use
  Company Number: JP-PFIZER INC-PV202400001759

PATIENT
  Sex: Female

DRUGS (5)
  1. SIROLIMUS [Suspect]
     Active Substance: SIROLIMUS
     Indication: Tuberous sclerosis complex
     Dosage: 4 MG,1 D
     Route: 064
     Dates: start: 20231017, end: 20231023
  2. SIROLIMUS [Suspect]
     Active Substance: SIROLIMUS
     Indication: Rhabdomyoma
     Dosage: 6 MG,1 D
     Route: 064
     Dates: start: 20231025, end: 20231107
  3. SIROLIMUS [Suspect]
     Active Substance: SIROLIMUS
     Dosage: 4 MG,1 D
     Route: 064
     Dates: start: 20231108, end: 20231115
  4. SIROLIMUS [Suspect]
     Active Substance: SIROLIMUS
     Dosage: 3 MG,1 D
     Route: 064
     Dates: start: 20231118, end: 20231119
  5. SODIUM GUALENATE [Concomitant]
     Active Substance: SODIUM GUALENATE
     Indication: Stomatitis
     Dosage: UNK
     Route: 064
     Dates: start: 20231101, end: 20231115

REACTIONS (2)
  - Maternal exposure during pregnancy [Unknown]
  - Newborn head moulding [Unknown]

NARRATIVE: CASE EVENT DATE: 20231017
